FAERS Safety Report 14770782 (Version 1)
Quarter: 2018Q2

REPORT INFORMATION
  Report Type: Report from Study
  Country: FR (occurrence: FR)
  Receive Date: 20180417
  Receipt Date: 20180417
  Transmission Date: 20180711
  Serious: Yes (Other)
  Sender: FDA-Public Use
  Company Number: FR-PFIZER INC-2018152493

PATIENT

DRUGS (3)
  1. ALLOPURINOL. [Concomitant]
     Active Substance: ALLOPURINOL
     Indication: PROPHYLAXIS
     Dosage: 300 MG, DAILY (FOR 7 DAYS)
     Route: 048
  2. URATE OXIDASE [Concomitant]
     Active Substance: RASBURICASE
     Indication: PROPHYLAXIS
     Dosage: UNK, (ON DAY 1)
     Route: 042
  3. ZAVEDOS [Suspect]
     Active Substance: IDARUBICIN
     Indication: ACUTE MYELOID LEUKAEMIA
     Dosage: 20 MG/M2, WEEKLY (20 MG/M2/WEEK FOR 4 WEEKS, ON DAYS 1, 8, 15 AND 22)
     Route: 048

REACTIONS (1)
  - Subdural haemorrhage [Recovered/Resolved]
